FAERS Safety Report 5501070-X (Version None)
Quarter: 2007Q4

REPORT INFORMATION
  Report Type: 
  Country: None (occurrence: None)
  Receive Date: 20071029
  Receipt Date: 20071017
  Transmission Date: 20080405
  Serious: Yes (Other)
  Sender: FDA-Public Use
  Company Number: BR-PFIZER INC-2006086194

PATIENT
  Sex: Female

DRUGS (6)
  1. DEPO-PROVERA SUSPENSION/INJ [Suspect]
     Indication: CONTRACEPTION
     Route: 030
     Dates: start: 20060213, end: 20060213
  2. DEPO-PROVERA SUSPENSION/INJ [Suspect]
     Route: 030
     Dates: start: 20060509, end: 20060509
  3. DEPO-PROVERA SUSPENSION/INJ [Suspect]
     Route: 030
     Dates: start: 20070925, end: 20070925
  4. ATORVASTATIN CALCIUM [Concomitant]
     Route: 048
     Dates: start: 20051101
  5. ATENOLOL [Concomitant]
  6. SIMVASTATIN [Concomitant]

REACTIONS (3)
  - BLOOD PRESSURE INCREASED [None]
  - DRUG ADMINISTRATION ERROR [None]
  - MENSTRUATION IRREGULAR [None]
